FAERS Safety Report 19452759 (Version 1)
Quarter: 2021Q2

REPORT INFORMATION
  Report Type: Spontaneous
  Country: DE (occurrence: DE)
  Receive Date: 20210623
  Receipt Date: 20210623
  Transmission Date: 20210717
  Serious: Yes (Other)
  Sender: FDA-Public Use
  Company Number: DE-ASTELLAS-2021US022517

PATIENT
  Age: 68 Year
  Sex: Male

DRUGS (35)
  1. BENDAMUSTINE HYDROCHLORIDE. [Suspect]
     Active Substance: BENDAMUSTINE HYDROCHLORIDE
     Indication: FOLLICULAR LYMPHOMA STAGE IV
     Dosage: UNK UNK, CYCLIC
     Route: 042
     Dates: start: 2013
  2. PREDNISOLONE. [Suspect]
     Active Substance: PREDNISOLONE
     Dosage: 180 MG, TOTAL DOSE  (D106)
     Route: 042
  3. PREDNISOLONE. [Suspect]
     Active Substance: PREDNISOLONE
     Dosage: 50 MG, ONCE DAILY (D161)
     Route: 065
  4. INFLIXIMAB [Suspect]
     Active Substance: INFLIXIMAB
     Indication: DERMATITIS
     Dosage: 425 MG, TWICE WEEKLY (D112)
     Route: 042
  5. INFLIXIMAB [Suspect]
     Active Substance: INFLIXIMAB
     Indication: DRY EYE
  6. PREDNISOLONE. [Suspect]
     Active Substance: PREDNISOLONE
     Route: 065
  7. BENDAMUSTINE HYDROCHLORIDE. [Suspect]
     Active Substance: BENDAMUSTINE HYDROCHLORIDE
     Dosage: UNK UNK, CYCLIC
     Route: 042
     Dates: start: 2016
  8. PREDNISOLONE. [Suspect]
     Active Substance: PREDNISOLONE
     Indication: STOMATITIS
     Dosage: 100 MG, ONCE DAILY (D78)
     Route: 042
  9. ATEZOLIZUMAB. [Concomitant]
     Active Substance: ATEZOLIZUMAB
     Indication: FOLLICULAR LYMPHOMA STAGE IV
     Dosage: 1200 MG, CYCLIC  (D1 OF C2?6)
     Route: 065
     Dates: start: 2017
  10. POLATUZUMAB VEDOTIN. [Concomitant]
     Active Substance: POLATUZUMAB VEDOTIN
     Indication: FOLLICULAR LYMPHOMA STAGE IV
     Dosage: 1.8 MG/KG, CYCLIC (D1 OF C1?6)
     Route: 065
     Dates: start: 2017
  11. PREDNISOLONE. [Suspect]
     Active Substance: PREDNISOLONE
     Dosage: 40 MG, ONCE DAILY (D118?152)
     Route: 065
  12. PREDNISOLONE. [Suspect]
     Active Substance: PREDNISOLONE
     Dosage: 30 MG, ONCE DAILY (D159)
     Route: 065
  13. ANAKINRA [Suspect]
     Active Substance: ANAKINRA
     Indication: STOMATITIS
  14. TACROLIMUS. [Suspect]
     Active Substance: TACROLIMUS
     Indication: DRY EYE
  15. PREDNISOLONE. [Suspect]
     Active Substance: PREDNISOLONE
     Indication: DERMATITIS
     Dosage: 10 MG, ONCE DAILY (D77)
     Route: 042
  16. PREDNISOLONE. [Suspect]
     Active Substance: PREDNISOLONE
     Indication: DRY EYE
     Dosage: 100 MG, ONCE DAILY (D84)
     Route: 048
  17. PREDNISOLONE. [Suspect]
     Active Substance: PREDNISOLONE
     Dosage: 100 MG, ONCE DAILY (D107)
     Route: 042
  18. ANAKINRA [Suspect]
     Active Substance: ANAKINRA
     Indication: DERMATITIS
     Dosage: 100 MG, ONCE DAILY (D203)
     Route: 058
  19. ANAKINRA [Suspect]
     Active Substance: ANAKINRA
     Indication: DRY EYE
  20. CICLOSPORIN [Suspect]
     Active Substance: CYCLOSPORINE
     Indication: DERMATITIS
     Dosage: UNK UNK, UNKNOWN FREQ.
     Route: 065
  21. CICLOSPORIN [Suspect]
     Active Substance: CYCLOSPORINE
     Indication: DRY EYE
  22. RITUXIMAB. [Concomitant]
     Active Substance: RITUXIMAB
     Indication: FOLLICULAR LYMPHOMA STAGE IV
     Dosage: UNK UNK, UNKNOWN FREQ.
     Route: 065
     Dates: start: 2013, end: 2015
  23. PREDNISOLONE. [Suspect]
     Active Substance: PREDNISOLONE
     Dosage: 70 MG, ONCE DAILY (D173?179)
     Route: 065
  24. PREDNISOLONE. [Suspect]
     Active Substance: PREDNISOLONE
     Dosage: 5 MG, ONCE DAILY (D186?239)
     Route: 065
  25. INFLIXIMAB [Suspect]
     Active Substance: INFLIXIMAB
     Indication: STOMATITIS
  26. VENETOCLAX. [Concomitant]
     Active Substance: VENETOCLAX
     Indication: FOLLICULAR LYMPHOMA STAGE IV
     Dosage: UNK UNK, UNKNOWN FREQ.
     Route: 065
     Dates: start: 2016
  27. OBINUTUZUMAB. [Concomitant]
     Active Substance: OBINUTUZUMAB
     Indication: FOLLICULAR LYMPHOMA STAGE IV
     Dosage: 1000 MG, CYCLIC (D1, D8, D15 OF C1; D1 OF C2?6)
     Route: 065
     Dates: start: 2017
  28. TACROLIMUS. [Suspect]
     Active Substance: TACROLIMUS
     Indication: DERMATITIS
     Dosage: 1 MG, ONCE DAILY (D164)
     Route: 048
  29. PREDNISOLONE. [Suspect]
     Active Substance: PREDNISOLONE
     Route: 065
  30. PREDNISOLONE. [Suspect]
     Active Substance: PREDNISOLONE
     Route: 065
  31. RITUXIMAB. [Concomitant]
     Active Substance: RITUXIMAB
     Dosage: UNK UNK, UNKNOWN FREQ.
     Route: 065
     Dates: start: 2016
  32. TACROLIMUS. [Suspect]
     Active Substance: TACROLIMUS
     Indication: STOMATITIS
  33. PREDNISOLONE. [Suspect]
     Active Substance: PREDNISOLONE
     Dosage: 20 MG, ONCE DAILY (D86?100)
     Route: 048
  34. PREDNISOLONE. [Suspect]
     Active Substance: PREDNISOLONE
     Dosage: 100 MG, ONCE DAILY (D164)
     Route: 065
  35. CICLOSPORIN [Suspect]
     Active Substance: CYCLOSPORINE
     Indication: STOMATITIS

REACTIONS (9)
  - Immune system disorder [Unknown]
  - Oral fungal infection [Recovered/Resolved]
  - Product use in unapproved indication [Unknown]
  - Oral fungal infection [Unknown]
  - Erysipelas [Recovered/Resolved]
  - Bronchopulmonary aspergillosis [Recovered/Resolved]
  - Bacteraemia [Recovered/Resolved]
  - Opportunistic infection [Unknown]
  - Viral infection [Recovered/Resolved]
